FAERS Safety Report 6845575-8 (Version None)
Quarter: 2010Q3

REPORT INFORMATION
  Report Type: 
  Country: None (occurrence: None)
  Receive Date: 20100713
  Receipt Date: 20100707
  Transmission Date: 20110219
  Serious: Yes (Death, Hospitalization, Other)
  Sender: FDA-Public Use
  Company Number: 2010US002668

PATIENT
  Age: 64 Year
  Sex: Female

DRUGS (8)
  1. PROGRAF [Suspect]
     Indication: LIVER TRANSPLANT
     Dates: start: 20070401
  2. MYCOPHENOLATE MOFETIL [Suspect]
     Indication: LIVER TRANSPLANT
     Dates: start: 20070401
  3. CORTICOSTEROID NOS (CORTICOSTEROID NOS) [Suspect]
     Indication: LIVER TRANSPLANT
     Dates: start: 20070401
  4. PIPERACILLIN W/TAZOBACTAM (PIPERACILLIN, TAZOBACTAM) [Concomitant]
  5. CIPROFLOXACIN [Concomitant]
  6. VANCOMYCIN [Concomitant]
  7. FLUCONAZOLE [Concomitant]
  8. TRIMETHOPRIM + SULFAMETHOXAZOLE [Concomitant]

REACTIONS (16)
  - ABDOMINAL INFECTION [None]
  - BACTERAEMIA [None]
  - BILIARY ANASTOMOSIS COMPLICATION [None]
  - BILOMA [None]
  - CYTOMEGALOVIRUS INFECTION [None]
  - DEHYDRATION [None]
  - ENTEROCOCCAL INFECTION [None]
  - FAILURE TO THRIVE [None]
  - INTESTINAL OBSTRUCTION [None]
  - MALNUTRITION [None]
  - MULTI-ORGAN FAILURE [None]
  - OESOPHAGEAL CANDIDIASIS [None]
  - PAIN [None]
  - TRANSPLANT REJECTION [None]
  - URINARY TRACT INFECTION [None]
  - WOUND INFECTION [None]
